FAERS Safety Report 5082159-9 (Version None)
Quarter: 2006Q3

REPORT INFORMATION
  Report Type: 
  Country: None (occurrence: None)
  Receive Date: 20060817
  Receipt Date: 20060807
  Transmission Date: 20061208
  Serious: Yes (Death)
  Sender: FDA-Public Use
  Company Number: BR-JNJFOC-20060801997

PATIENT
  Age: 79 Year
  Sex: Male
  Weight: 55 kg

DRUGS (8)
  1. HALDOL [Suspect]
     Indication: SLEEP DISORDER THERAPY
     Route: 050
  2. PHENERGAN HCL [Suspect]
     Indication: DRUG USE FOR UNKNOWN INDICATION
     Route: 030
  3. FUROSEMIDE [Concomitant]
     Indication: OEDEMA
     Route: 048
  4. DIGOXIN [Concomitant]
     Indication: CARDIAC FAILURE
     Route: 048
  5. CAPTOPRIL [Concomitant]
     Indication: HYPERTENSION
     Route: 048
  6. POTASSIUM CHLORIDE [Concomitant]
     Indication: HYPOKALAEMIA
     Route: 048
  7. ACETYLSALICYLIC ACID SRT [Concomitant]
     Indication: CEREBROVASCULAR ACCIDENT PROPHYLAXIS
     Route: 048
  8. ACETYLSALICYLIC ACID SRT [Concomitant]
     Indication: THROMBOSIS
     Route: 048

REACTIONS (2)
  - CARDIAC ARREST [None]
  - DEATH [None]
